FAERS Safety Report 7779509-9 (Version None)
Quarter: 2011Q3

REPORT INFORMATION
  Report Type: 
  Country: None (occurrence: None)
  Receive Date: 20110927
  Receipt Date: 20110914
  Transmission Date: 20111222
  Serious: Yes (Disabling, Other)
  Sender: FDA-Public Use
  Company Number: JP-SP-2011-02167

PATIENT
  Sex: Male

DRUGS (3)
  1. IMMUCYST [Suspect]
     Indication: BLADDER CANCER
     Route: 043
     Dates: start: 20100301, end: 20100401
  2. NATEGLINIDE [Concomitant]
     Indication: DIABETES MELLITUS
  3. BENZAFIBRATE [Concomitant]
     Indication: HYPERLIPIDAEMIA

REACTIONS (8)
  - HYDRONEPHROSIS [None]
  - POLLAKIURIA [None]
  - HAEMATURIA [None]
  - BLADDER IRRITATION [None]
  - PYURIA [None]
  - TUBERCULOSIS BLADDER [None]
  - CYSTITIS NONINFECTIVE [None]
  - REDUCED BLADDER CAPACITY [None]
